FAERS Safety Report 9128509 (Version 1)
Quarter: 2013Q1

REPORT INFORMATION
  Report Type: Spontaneous
  Country: US (occurrence: US)
  Receive Date: 20130228
  Receipt Date: 20130228
  Transmission Date: 20140127
  Serious: No
  Sender: FDA-Public Use
  Company Number: US-GLAXOSMITHKLINE-A0999972A

PATIENT
  Age: 40 Year
  Sex: Male

DRUGS (2)
  1. IMITREX [Suspect]
     Dosage: 6MG SINGLE DOSE
     Route: 042
     Dates: start: 20121105
  2. UNKNOWN [Concomitant]

REACTIONS (2)
  - Headache [Unknown]
  - Drug administration error [Unknown]
